FAERS Safety Report 9306803 (Version 2)
Quarter: 2013Q3

REPORT INFORMATION
  Report Type: Spontaneous
  Country: US (occurrence: US)
  Receive Date: 20130523
  Receipt Date: 20130805
  Transmission Date: 20140515
  Serious: No
  Sender: FDA-Public Use
  Company Number: US-TEVA-406669USA

PATIENT
  Sex: Female

DRUGS (1)
  1. QVAR [Suspect]
     Indication: ASTHMA
     Route: 055

REACTIONS (2)
  - Breast cyst [Recovered/Resolved]
  - Underdose [Unknown]
